FAERS Safety Report 5028473-4 (Version None)
Quarter: 2006Q2

REPORT INFORMATION
  Report Type: 
  Country: None (occurrence: None)
  Receive Date: 20060617
  Receipt Date: 20060607
  Transmission Date: 20061013
  Serious: Yes (Death)
  Sender: FDA-Public Use
  Company Number: JP-JPN-A200601912

PATIENT
  Age: 6 Year
  Sex: Male

DRUGS (8)
  1. ALKERAN [Suspect]
     Indication: RETINOBLASTOMA BILATERAL
     Route: 042
     Dates: start: 19990601
  2. CYCLOPHOSPHAMIDE [Suspect]
     Indication: RETINOBLASTOMA BILATERAL
     Route: 065
     Dates: start: 19990225
  3. ETOPOSIDE [Suspect]
     Indication: RETINOBLASTOMA BILATERAL
     Route: 065
     Dates: start: 19990225
  4. CARBOPLATIN [Suspect]
     Indication: RETINOBLASTOMA BILATERAL
     Route: 042
     Dates: start: 19990225
  5. PIRARUBICIN HYDROCHLORIDE [Suspect]
     Indication: RETINOBLASTOMA BILATERAL
     Route: 042
     Dates: start: 19990225
  6. IFOSFAMIDE [Suspect]
     Indication: RETINOBLASTOMA BILATERAL
     Route: 042
     Dates: start: 19990601
  7. BUSULFAN [Suspect]
     Indication: RETINOBLASTOMA BILATERAL
     Route: 048
     Dates: start: 19991001
  8. THIOTEPA [Suspect]
     Indication: RETINOBLASTOMA BILATERAL
     Route: 042

REACTIONS (2)
  - BONE SARCOMA [None]
  - RESPIRATORY DISORDER [None]
